FAERS Safety Report 9639909 (Version 1)
Quarter: 2013Q4

REPORT INFORMATION
  Report Type: Spontaneous
  Country: US (occurrence: None)
  Receive Date: 20131021
  Receipt Date: 20131021
  Transmission Date: 20140711
  Serious: Yes (Disabling, Other)
  Sender: FDA-Public Use
  Company Number: None

PATIENT
  Age: 51 None
  Sex: 0
  Weight: 56.7 kg

DRUGS (12)
  1. RISPERDAL [Suspect]
     Indication: ANXIETY
     Dosage: 1 TAB AT BED TIME BY MOUTH
     Route: 048
     Dates: start: 200905, end: 20111105
  2. RISPERDAL [Suspect]
     Indication: DEPRESSION
     Dosage: 1 TAB AT BED TIME BY MOUTH
     Route: 048
     Dates: start: 200905, end: 20111105
  3. DIVALPROEX [Concomitant]
  4. SODIUM [Concomitant]
  5. DEL REL [Concomitant]
  6. BACLOFEN [Concomitant]
  7. FOLIC ACID [Concomitant]
  8. TRIHEXYPHENIDYL [Concomitant]
  9. IBUPROFEN [Concomitant]
  10. YOUR LIFE MULTI [Concomitant]
  11. FISH OIL [Concomitant]
  12. ALOE VERA [Concomitant]

REACTIONS (12)
  - Dyspnoea [None]
  - Muscle spasms [None]
  - Anxiety [None]
  - Muscle twitching [None]
  - Excessive eye blinking [None]
  - Tardive dyskinesia [None]
  - Swollen tongue [None]
  - Rhinorrhoea [None]
  - Tongue biting [None]
  - Dizziness [None]
  - Alopecia [None]
  - Speech disorder [None]
